FAERS Safety Report 9228633 (Version 1)
Quarter: 2013Q2

REPORT INFORMATION
  Report Type: Report from Study
  Country: KR (occurrence: KR)
  Receive Date: 20130412
  Receipt Date: 20130412
  Transmission Date: 20140414
  Serious: Yes (Other)
  Sender: FDA-Public Use
  Company Number: KR-GENZYME-MOZO-1000835

PATIENT
  Age: 48 Month
  Sex: Male

DRUGS (6)
  1. MOZOBIL [Suspect]
     Indication: HAEMATOPOIETIC STEM CELL MOBILISATION
     Dosage: 0.24 MG/KG, QD
     Route: 058
  2. G-CSF [Suspect]
     Indication: HAEMATOPOIETIC STEM CELL MOBILISATION
     Dosage: 5 MCG/KG, QD
     Route: 065
  3. CISPLATIN [Concomitant]
     Indication: NEUROBLASTOMA
     Dosage: UNK
     Route: 065
  4. ETOPOSIDE [Concomitant]
     Indication: NEUROBLASTOMA
     Dosage: UNK
     Route: 065
  5. DOXORUBICIN [Concomitant]
     Indication: NEUROBLASTOMA
     Dosage: UNK
     Route: 065
  6. CYCLOPHOSPHAMIDE [Concomitant]
     Indication: NEUROBLASTOMA
     Dosage: UNK
     Route: 065

REACTIONS (3)
  - Hallucination, visual [Recovered/Resolved]
  - Nightmare [Recovered/Resolved]
  - Noctiphobia [Recovered/Resolved]
